FAERS Safety Report 9722091 (Version 2)
Quarter: 2013Q4

REPORT INFORMATION
  Report Type: Spontaneous
  Country: IL (occurrence: IL)
  Receive Date: 20131202
  Receipt Date: 20131219
  Transmission Date: 20140711
  Serious: Yes (Hospitalization)
  Sender: FDA-Public Use
  Company Number: IL-AMGEN-ISRSP2013084010

PATIENT
  Age: 46 Year
  Sex: Male

DRUGS (2)
  1. ENBREL [Suspect]
     Indication: ANKYLOSING SPONDYLITIS
     Dosage: 50 MG, WEEKLY
     Route: 065
     Dates: start: 20110413
  2. PREDNISONE [Concomitant]
     Dosage: UNK UNK, UNK

REACTIONS (3)
  - Inflammation [Recovering/Resolving]
  - Arthralgia [Unknown]
  - Infection [Recovering/Resolving]
